FAERS Safety Report 22239824 (Version 1)
Quarter: 2023Q2

REPORT INFORMATION
  Report Type: Spontaneous
  Country: US (occurrence: US)
  Receive Date: 20230421
  Receipt Date: 20230421
  Transmission Date: 20230722
  Serious: No
  Sender: FDA-Public Use
  Company Number: US-SA-SAC20230419001704

PATIENT
  Age: 68 Year
  Sex: Female

DRUGS (17)
  1. DUPIXENT [Suspect]
     Active Substance: DUPILUMAB
     Indication: Dermatitis atopic
     Dosage: 300 MG, QOW
     Route: 058
  2. AMLODIPINE BESYLATE [Concomitant]
     Active Substance: AMLODIPINE BESYLATE
  3. BUSPIRONE HYDROCHLORIDE [Concomitant]
     Active Substance: BUSPIRONE HYDROCHLORIDE
  4. CALCIUM [Concomitant]
     Active Substance: CALCIUM
  5. GABAPENTIN [Concomitant]
     Active Substance: GABAPENTIN
  6. INSULIN ASPART [Concomitant]
     Active Substance: INSULIN ASPART
  7. ISOSORBIDE [Concomitant]
     Active Substance: ISOSORBIDE
  8. LEVOTHYROXINE SODIUM [Concomitant]
     Active Substance: LEVOTHYROXINE SODIUM
  9. METOPROLOL SUCCINATE [Concomitant]
     Active Substance: METOPROLOL SUCCINATE
  10. MOUNJARO [Concomitant]
     Active Substance: TIRZEPATIDE
  11. NEXIUM I.V. [Concomitant]
     Active Substance: ESOMEPRAZOLE SODIUM
  12. RAMIPRIL [Concomitant]
     Active Substance: RAMIPRIL
  13. ROSUVASTATIN CALCIUM [Concomitant]
     Active Substance: ROSUVASTATIN CALCIUM
  14. VITAMIN B12 [Concomitant]
     Active Substance: CYANOCOBALAMIN
  15. CALCIUM ASCORBATE [Concomitant]
     Active Substance: CALCIUM ASCORBATE
  16. ZINC [Concomitant]
     Active Substance: ZINC
  17. MULTI COMPLETE [Concomitant]

REACTIONS (9)
  - Frustration tolerance decreased [Unknown]
  - Stress [Unknown]
  - Condition aggravated [Unknown]
  - Dermatitis atopic [Unknown]
  - Skin haemorrhage [Unknown]
  - Dry skin [Unknown]
  - Skin exfoliation [Unknown]
  - Pruritus [Unknown]
  - Drug ineffective [Unknown]

NARRATIVE: CASE EVENT DATE: 20230401
